FAERS Safety Report 17000670 (Version 1)
Quarter: 2019Q4

REPORT INFORMATION
  Report Type: Spontaneous
  Country: TW (occurrence: TW)
  Receive Date: 20191106
  Receipt Date: 20191106
  Transmission Date: 20200122
  Serious: Yes (Hospitalization, Other)
  Sender: FDA-Public Use
  Company Number: TW-ASTRAZENECA-2019SF53627

PATIENT
  Age: 56 Year
  Sex: Female

DRUGS (15)
  1. ERIBULIN [Concomitant]
     Active Substance: ERIBULIN
     Indication: BREAST CANCER
     Dosage: PROGRESSIVE DISEASE WITH PERITONEAL CARCINOMATOSIS STATUS POST ERIBULIN +FULVESTRANT
     Dates: start: 20190116
  2. DOXORUBICIN [Concomitant]
     Active Substance: DOXORUBICIN
     Indication: BREAST CANCER
  3. EXEMESTANE. [Concomitant]
     Active Substance: EXEMESTANE
     Indication: BREAST CANCER
     Dosage: EVEROLIMUS+EXEMESTANE, ORAL FORM WEEKLY VINORELBINE, TRIWEEKLY GEMCITABINE+PACLITAXEL
  4. VINORELBINE [Concomitant]
     Active Substance: VINORELBINE TARTRATE
     Indication: BREAST CANCER
     Dosage: EVEROLIMUS+EXEMESTANE, ORAL FORM WEEKLY VINORELBINE, TRIWEEKLY GEMCITABINE+PACLITAXEL
  5. FASLODEX [Suspect]
     Active Substance: FULVESTRANT
     Indication: BREAST CANCER
     Route: 030
     Dates: start: 20170929, end: 20190104
  6. IBRANCE [Suspect]
     Active Substance: PALBOCICLIB
     Indication: BREAST CANCER
     Route: 048
     Dates: start: 20190920
  7. DOCETAXEL. [Concomitant]
     Active Substance: DOCETAXEL
     Indication: BREAST CANCER
     Dosage: DOCETAXEL FOR 4 CYCLES
  8. FASLODEX [Suspect]
     Active Substance: FULVESTRANT
     Indication: BREAST CANCER
     Dosage: PROGRESSIVE DISEASE WITH PERITONEAL CARCINOMATOSIS STATUS POST ERIBULIN +FULVESTRANT
     Route: 030
     Dates: start: 20190116
  9. CAPECITABINE. [Concomitant]
     Active Substance: CAPECITABINE
     Indication: BREAST CANCER
     Dosage: PROGRESSIVE DISEASE STATUS POST CAPECITABINE
     Dates: start: 20190323, end: 20190919
  10. LETROZOLE. [Concomitant]
     Active Substance: LETROZOLE
     Dosage: HORMONE THERAPY WITH LETROZOLE SINCE 14-OCT-2015
     Dates: start: 20151014
  11. CYCLOPHOSPHAMIDE. [Concomitant]
     Active Substance: CYCLOPHOSPHAMIDE
     Indication: BREAST CANCER
     Dosage: DOXORUBICIN AND CYCLOPHOSPHAMIDE (AC) FOR 4 CYCLES
  12. PACLITAXEL. [Concomitant]
     Active Substance: PACLITAXEL
     Indication: BREAST CANCER
     Dosage: EVEROLIMUS+EXEMESTANE, ORAL FORM WEEKLY VINORELBINE, TRIWEEKLY GEMCITABINE+PACLITAXEL
  13. LIPO-DOXORUBICIN [Concomitant]
     Indication: BREAST CANCER
     Dosage: PROGRESSIVE LIVER DISEASE STATUS POST LIPO-DOXORUBICIN(LIPO-DOX)+FULVESTRANT
     Dates: start: 20170929, end: 20190104
  14. EVEROLIMUS. [Concomitant]
     Active Substance: EVEROLIMUS
     Indication: BREAST CANCER
     Dosage: EVEROLIMUS+EXEMESTANE, ORAL FORM WEEKLY VINORELBINE, TRIWEEKLY GEMCITABINE+PACLITAXEL
  15. GEMCITABINE. [Concomitant]
     Active Substance: GEMCITABINE
     Indication: BREAST CANCER
     Dosage: EVEROLIMUS+EXEMESTANE, ORAL FORM WEEKLY VINORELBINE, TRIWEEKLY GEMCITABINE+PACLITAXEL

REACTIONS (3)
  - Metastases to liver [Unknown]
  - Metastases to peritoneum [Unknown]
  - Malignant ascites [Unknown]
